FAERS Safety Report 8037181-7 (Version None)
Quarter: 2012Q1

REPORT INFORMATION
  Report Type: 
  Country: None (occurrence: None)
  Receive Date: 20120111
  Receipt Date: 20120110
  Transmission Date: 20120608
  Serious: Yes (Other)
  Sender: FDA-Public Use
  Company Number: US-ROCHE-783995

PATIENT
  Sex: Male
  Weight: 83.99 kg

DRUGS (3)
  1. ACCUTANE [Suspect]
     Dates: start: 19921207, end: 19930101
  2. ACCUTANE [Suspect]
  3. ACCUTANE [Suspect]
     Indication: ACNE
     Route: 065

REACTIONS (6)
  - INFLAMMATORY BOWEL DISEASE [None]
  - FISTULA [None]
  - IRRITABLE BOWEL SYNDROME [None]
  - CROHN'S DISEASE [None]
  - DEPRESSION [None]
  - INTESTINAL OBSTRUCTION [None]
